FAERS Safety Report 5059501-8 (Version None)
Quarter: 2006Q3

REPORT INFORMATION
  Report Type: 
  Country: None (occurrence: None)
  Receive Date: 20060724
  Receipt Date: 20050209
  Transmission Date: 20061208
  Serious: Yes (Other)
  Sender: FDA-Public Use
  Company Number: PHNU2005DE00907

PATIENT
  Age: 81 Year
  Sex: Male

DRUGS (5)
  1. ZOMETA [Suspect]
     Indication: METASTASES TO BONE
     Dosage: 4 MG, Q3MO
     Route: 042
  2. ZOMETA [Suspect]
     Dosage: 4 MG EVERY 6 WEEKS
     Route: 042
     Dates: start: 20001101
  3. MITOXANTRONE [Concomitant]
     Indication: PROSTATE CANCER METASTATIC
     Dosage: 6 CYCLES
     Dates: start: 20040301, end: 20041201
  4. PREDNISOLONE [Concomitant]
     Dosage: 5 MG, BID
     Route: 065
     Dates: start: 20040301, end: 20041201
  5. ESTRAMUSTINE [Concomitant]
     Route: 048
     Dates: start: 20001101, end: 20010301

REACTIONS (5)
  - DENTAL OPERATION [None]
  - FUNGAL INFECTION [None]
  - OSTEOMYELITIS [None]
  - OSTEONECROSIS [None]
  - PRIMARY SEQUESTRUM [None]
